FAERS Safety Report 4315272-1 (Version None)
Quarter: 2004Q1

REPORT INFORMATION
  Report Type: 
  Country: None (occurrence: None)
  Receive Date: 20040309
  Receipt Date: 20040226
  Transmission Date: 20041129
  Serious: Yes (Other)
  Sender: FDA-Public Use
  Company Number: US068407

PATIENT

DRUGS (1)
  1. ENBREL [Suspect]

REACTIONS (1)
  - HYPERTENSION [None]
